FAERS Safety Report 11420177 (Version 2)
Quarter: 2015Q4

REPORT INFORMATION
  Report Type: Spontaneous
  Country: US (occurrence: US)
  Receive Date: 20150826
  Receipt Date: 20151009
  Transmission Date: 20160304
  Serious: Yes (Other)
  Sender: FDA-Public Use
  Company Number: US-PFIZER INC-2015280006

PATIENT
  Age: 77 Year
  Sex: Female
  Weight: 69 kg

DRUGS (10)
  1. PREMARIN [Suspect]
     Active Substance: ESTROGENS, CONJUGATED
     Indication: INCONTINENCE
  2. PATANOL [Concomitant]
     Active Substance: OLOPATADINE HYDROCHLORIDE
     Indication: EYE PRURITUS
     Dosage: 1 GTT, IN EACH EYE, UP TO 3 TIMES PER DAY
     Route: 047
  3. AMLODIPINE BESILATE [Concomitant]
     Active Substance: AMLODIPINE BESYLATE
     Indication: BLOOD PRESSURE ABNORMAL
     Dosage: 10 MG, AS NEEDED (ONE TABLET AT NIGHT WHEN HER HEARTBEAT WAS SLOW)
  4. PREMARIN [Suspect]
     Active Substance: ESTROGENS, CONJUGATED
     Indication: VULVOVAGINAL DRYNESS
     Dosage: 1 G, CYCLIC  (USE IT FOR 21 DAYS,OFF FOR 7 DAY)
     Route: 067
  5. PREMARIN [Suspect]
     Active Substance: ESTROGENS, CONJUGATED
     Indication: INCONTINENCE
  6. PREMARIN [Suspect]
     Active Substance: ESTROGENS, CONJUGATED
     Indication: INFECTION PROPHYLAXIS
  7. LEVOBUNOLOL [Concomitant]
     Active Substance: LEVOBUNOLOL
     Indication: GLAUCOMA
     Dosage: UNK
  8. PREMARIN [Suspect]
     Active Substance: ESTROGENS, CONJUGATED
     Indication: VULVOVAGINAL DRYNESS
     Dosage: 1 G, CYCLIC (USE IT FOR 21 DAYS,OFF FOR 7 DAY)
     Route: 067
     Dates: start: 2006
  9. PREMARIN [Suspect]
     Active Substance: ESTROGENS, CONJUGATED
     Indication: INFECTION PROPHYLAXIS
  10. TRAVATAN [Concomitant]
     Active Substance: TRAVOPROST
     Indication: GLAUCOMA
     Dosage: UNK

REACTIONS (3)
  - Incontinence [Unknown]
  - Intentional underdose [Unknown]
  - Intraocular pressure increased [Unknown]
